FAERS Safety Report 12110823 (Version 1)
Quarter: 2016Q1

REPORT INFORMATION
  Report Type: Spontaneous
  Country: US (occurrence: US)
  Receive Date: 20160224
  Receipt Date: 20160224
  Transmission Date: 20160526
  Serious: No
  Sender: FDA-Public Use
  Company Number: US-JAZZ-2015-US-004818

PATIENT
  Sex: Female

DRUGS (2)
  1. PRIALT [Suspect]
     Active Substance: ZICONOTIDE ACETATE
     Dosage: 0.069 ?G, QH
     Route: 037
  2. ROXICODONE [Concomitant]
     Active Substance: OXYCODONE HYDROCHLORIDE
     Dosage: 30 MG, UNK

REACTIONS (9)
  - Musculoskeletal pain [Unknown]
  - Mass [Unknown]
  - Mobility decreased [Unknown]
  - Back pain [Unknown]
  - Muscular weakness [Unknown]
  - Headache [Unknown]
  - Feeling abnormal [Unknown]
  - Mental impairment [Unknown]
  - Drug withdrawal syndrome [Unknown]

NARRATIVE: CASE EVENT DATE: 201411
